FAERS Safety Report 18870041 (Version 1)
Quarter: 2021Q1

REPORT INFORMATION
  Report Type: Other
  Country: IT (occurrence: IT)
  Receive Date: 20210209
  Receipt Date: 20210209
  Transmission Date: 20210420
  Serious: Yes (Death, Life-Threatening, Other)
  Sender: FDA-Public Use
  Company Number: IT-ROCHE-2761641

PATIENT

DRUGS (1)
  1. BEVACIZUMAB. [Suspect]
     Active Substance: BEVACIZUMAB
     Indication: OVARIAN CANCER STAGE III
     Route: 065

REACTIONS (22)
  - Haemorrhage [Fatal]
  - Pulmonary hypertension [Fatal]
  - Intestinal obstruction [Fatal]
  - Acute kidney injury [Unknown]
  - Intracranial pressure increased [Fatal]
  - Cardiac failure [Fatal]
  - Gastrointestinal necrosis [Fatal]
  - Shock [Fatal]
  - Posterior reversible encephalopathy syndrome [Fatal]
  - Pneumonitis [Fatal]
  - Respiratory tract haemorrhage [Unknown]
  - Nasal septum perforation [Unknown]
  - Ischaemia [Fatal]
  - Embolism [Fatal]
  - Fistula [Fatal]
  - Ascites [Unknown]
  - Gastric perforation [Fatal]
  - Aortitis [Unknown]
  - Lymphangitis [Unknown]
  - Intestinal perforation [Fatal]
  - Dysphonia [Unknown]
  - Headache [Unknown]
